FAERS Safety Report 23142910 (Version 1)
Quarter: 2023Q4

REPORT INFORMATION
  Report Type: Spontaneous
  Country: US (occurrence: US)
  Receive Date: 20231103
  Receipt Date: 20231103
  Transmission Date: 20240110
  Serious: Yes (Life-Threatening, Hospitalization, Other)
  Sender: FDA-Public Use
  Company Number: US-GLENMARK PHARMACEUTICALS-2023GMK086118

PATIENT

DRUGS (1)
  1. SULFAMETHOXAZOLE\TRIMETHOPRIM [Suspect]
     Active Substance: SULFAMETHOXAZOLE\TRIMETHOPRIM
     Indication: Urinary tract infection
     Dosage: UNK
     Route: 065

REACTIONS (12)
  - Mental status changes [Recovered/Resolved]
  - Hypokalaemia [Unknown]
  - Long QT syndrome congenital [Unknown]
  - Pulse absent [Recovered/Resolved]
  - Cardiac arrest [Recovered/Resolved]
  - Metabolic disorder [Unknown]
  - Seizure like phenomena [Recovered/Resolved]
  - Condition aggravated [Unknown]
  - Unmasking of previously unidentified disease [Unknown]
  - Unresponsive to stimuli [Recovered/Resolved]
  - Hypomagnesaemia [Unknown]
  - Torsade de pointes [Unknown]
